FAERS Safety Report 8002109-2 (Version None)
Quarter: 2011Q4

REPORT INFORMATION
  Report Type: 
  Country: None (occurrence: None)
  Receive Date: 20111222
  Receipt Date: 20111219
  Transmission Date: 20120403
  Serious: Yes (Other)
  Sender: FDA-Public Use
  Company Number: US-PFIZER INC-2011307958

PATIENT
  Sex: Female
  Weight: 54.422 kg

DRUGS (2)
  1. XALATAN [Suspect]
     Indication: INTRAOCULAR PRESSURE TEST ABNORMAL
     Dosage: UNK, 1X/DAY
     Dates: start: 20080101
  2. XALATAN [Suspect]
     Indication: GLAUCOMA

REACTIONS (1)
  - HYPERTENSION [None]
